FAERS Safety Report 10452247 (Version 1)
Quarter: 2014Q3

REPORT INFORMATION
  Report Type: Spontaneous
  Country: US (occurrence: US)
  Receive Date: 20140915
  Receipt Date: 20140915
  Transmission Date: 20150326
  Serious: Yes (Other)
  Sender: FDA-Public Use
  Company Number: 2014SP002881

PATIENT
  Age: 58 Year
  Sex: Male

DRUGS (3)
  1. ALBUTEROL. [Suspect]
     Active Substance: ALBUTEROL
     Route: 055
  2. BROVANA [Suspect]
     Active Substance: ARFORMOTEROL TARTRATE
     Indication: PNEUMONIA
     Route: 055
     Dates: start: 201408, end: 201408
  3. BUDESONIDE. [Concomitant]
     Active Substance: BUDESONIDE
     Route: 055

REACTIONS (4)
  - Off label use [None]
  - Swelling face [Unknown]
  - Headache [Recovered/Resolved]
  - Swollen tongue [Unknown]
